FAERS Safety Report 17912697 (Version 2)
Quarter: 2020Q3

REPORT INFORMATION
  Report Type: Spontaneous
  Country: US (occurrence: US)
  Receive Date: 20200618
  Receipt Date: 20200702
  Transmission Date: 20201103
  Serious: No
  Sender: FDA-Public Use
  Company Number: US-ITALFARMACO SPA-2086070

PATIENT
  Age: 66 Year
  Sex: Female

DRUGS (12)
  1. TIGLUTIK [Suspect]
     Active Substance: RILUZOLE
     Indication: AMYOTROPHIC LATERAL SCLEROSIS
     Route: 048
     Dates: start: 20200317
  2. BUPROPION. [Concomitant]
     Active Substance: BUPROPION
  3. FUROSEMIDE. [Concomitant]
     Active Substance: FUROSEMIDE
  4. PRAVASTATIN. [Concomitant]
     Active Substance: PRAVASTATIN
  5. DIAZEPAM. [Concomitant]
     Active Substance: DIAZEPAM
  6. ZETIA [Concomitant]
     Active Substance: EZETIMIBE
  7. ISOSOURCE (CARBOHYDRATES NOS, FATS NOS, MINERALS NOS, PROTEINS NOS, VI [Concomitant]
  8. DICLOFENAC [Concomitant]
     Active Substance: DICLOFENAC
  9. VITAMIN D3 [Concomitant]
     Active Substance: CHOLECALCIFEROL
  10. ANASTROZOLE. [Concomitant]
     Active Substance: ANASTROZOLE
  11. GLYCOPYRROLATE. [Concomitant]
     Active Substance: GLYCOPYRROLATE
  12. VENLAFAXINE [Concomitant]
     Active Substance: VENLAFAXINE HYDROCHLORIDE

REACTIONS (2)
  - Abdominal pain upper [Not Recovered/Not Resolved]
  - Nausea [Not Recovered/Not Resolved]
